FAERS Safety Report 10622158 (Version 1)
Quarter: 2014Q4

REPORT INFORMATION
  Report Type: Spontaneous
  Country: US (occurrence: None)
  Receive Date: 20141201
  Receipt Date: 20141201
  Transmission Date: 20150529
  Serious: Yes (Hospitalization)
  Sender: FDA-Public Use
  Company Number: None

PATIENT
  Age: 61 Year
  Sex: Male
  Weight: 97.3 kg

DRUGS (1)
  1. EFAVIRENZ/EMTRICITABINE/TENOFOVIR [Suspect]
     Active Substance: EFAVIRENZ\EMTRICITABINE\TENOFOVIR DISOPROXIL FUMARATE
     Indication: INFECTION
     Dosage: 1 TAB EVERY DAY PO
     Route: 048
     Dates: start: 20080712

REACTIONS (1)
  - Lipodystrophy acquired [None]

NARRATIVE: CASE EVENT DATE: 20141007
